FAERS Safety Report 9962011 (Version 1)
Quarter: 2014Q1

REPORT INFORMATION
  Report Type: Report from Study
  Country: US (occurrence: US)
  Receive Date: 20140305
  Receipt Date: 20140305
  Transmission Date: 20141002
  Serious: No
  Sender: FDA-Public Use
  Company Number: US-ABBVIE-13P-163-1113876-00

PATIENT
  Age: 35 Year
  Sex: Female

DRUGS (1)
  1. HUMIRA [Suspect]
     Indication: PSORIASIS
     Dates: start: 201301

REACTIONS (5)
  - Fatigue [Not Recovered/Not Resolved]
  - Contusion [Not Recovered/Not Resolved]
  - Alopecia [Not Recovered/Not Resolved]
  - Fall [Unknown]
  - Hypertension [Not Recovered/Not Resolved]
